FAERS Safety Report 15879816 (Version 1)
Quarter: 2019Q1

REPORT INFORMATION
  Report Type: Spontaneous
  Country: PT (occurrence: PT)
  Receive Date: 20190128
  Receipt Date: 20190128
  Transmission Date: 20190417
  Serious: Yes (Other)
  Sender: FDA-Public Use
  Company Number: PT-MYLANLABS-2019M1002436

PATIENT
  Age: 41 Year
  Weight: 71 kg

DRUGS (4)
  1. IBUPROFEN. [Interacting]
     Active Substance: IBUPROFEN
     Dosage: 600 MILLIGRAM
     Route: 048
     Dates: start: 20180606, end: 20180611
  2. AMOXICILLIN/CLAVULANIC ACID [Interacting]
     Active Substance: AMOXICILLIN\CLAVULANIC ACID
     Indication: UPPER RESPIRATORY TRACT INFECTION
     Dosage: 875 MG + 125 MG DE 12 EM 12 HORAS, 8 DIAS
     Route: 048
     Dates: start: 20180606
  3. IBUPROFEN. [Suspect]
     Active Substance: IBUPROFEN
     Indication: MENORRHAGIA
     Dosage: 1 CP DE 12 EM 12 HORAS, 5 DIAS
     Route: 048
     Dates: start: 20180606
  4. IMPLANON [Concomitant]
     Active Substance: ETONOGESTREL
     Indication: CONTRACEPTION
     Dosage: 1 DOSAGE FORM, QD
     Route: 058
     Dates: start: 20161027

REACTIONS (3)
  - Pruritus generalised [Unknown]
  - Drug interaction [Unknown]
  - Rash maculo-papular [Unknown]

NARRATIVE: CASE EVENT DATE: 20180607
